FAERS Safety Report 25885829 (Version 2)
Quarter: 2025Q4

REPORT INFORMATION
  Report Type: Spontaneous
  Country: US (occurrence: US)
  Receive Date: 20251006
  Receipt Date: 20251014
  Transmission Date: 20260118
  Serious: Yes (Other)
  Sender: ALCON
  Company Number: US-ALCON LABORATORIES-ALC2025US005271

PATIENT
  Age: 54 Year
  Sex: Female

DRUGS (2)
  1. SYSTANE HYDRATION PF PRESERVATIVE FREE [Suspect]
     Active Substance: POLYETHYLENE GLYCOL 400\PROPYLENE GLYCOL
     Indication: Dry eye
     Dosage: NIGHTLY 1 DROP EACH EYE
     Route: 047
     Dates: start: 202503, end: 202508
  2. SYSTANE HYDRATION PF PRESERVATIVE FREE [Suspect]
     Active Substance: POLYETHYLENE GLYCOL 400\PROPYLENE GLYCOL
     Indication: Dry eye
     Dosage: NIGHTLY 1 DROP EACH EYE
     Route: 047
     Dates: start: 202503, end: 202508

REACTIONS (2)
  - Product contamination microbial [Unknown]
  - Poor quality product administered [Unknown]

NARRATIVE: CASE EVENT DATE: 20250801
